FAERS Safety Report 13820381 (Version 1)
Quarter: 2017Q3

REPORT INFORMATION
  Report Type: Spontaneous
  Country: GB (occurrence: GB)
  Receive Date: 20170801
  Receipt Date: 20170801
  Transmission Date: 20171127
  Serious: Yes (Life-Threatening, Hospitalization, Other)
  Sender: FDA-Public Use
  Company Number: GB-TORRENT-00015461

PATIENT
  Age: 56 Year
  Sex: Female
  Weight: 85 kg

DRUGS (7)
  1. RAMIPRIL. [Suspect]
     Active Substance: RAMIPRIL
  2. ATENOLOL. [Suspect]
     Active Substance: ATENOLOL
  3. SERTRALINE [Suspect]
     Active Substance: SERTRALINE HYDROCHLORIDE
  4. SIMVASTATIN. [Suspect]
     Active Substance: SIMVASTATIN
  5. METFORMIN [Suspect]
     Active Substance: METFORMIN HYDROCHLORIDE
  6. OLANZAPINE. [Suspect]
     Active Substance: OLANZAPINE
  7. ASPIRIN. [Suspect]
     Active Substance: ASPIRIN

REACTIONS (5)
  - Overdose [Recovered/Resolved]
  - Unresponsive to stimuli [Unknown]
  - Pneumonia [Unknown]
  - Acute kidney injury [Unknown]
  - Hypotension [Unknown]

NARRATIVE: CASE EVENT DATE: 20170613
